FAERS Safety Report 17669249 (Version 1)
Quarter: 2020Q2

REPORT INFORMATION
  Report Type: Other
  Country: DE (occurrence: DE)
  Receive Date: 20200415
  Receipt Date: 20200415
  Transmission Date: 20200713
  Serious: Yes (Congenital Anomaly, Other)
  Sender: FDA-Public Use
  Company Number: DE-LUPIN PHARMACEUTICALS INC.-2020-01629

PATIENT
  Age: 0 Day
  Sex: Female
  Weight: 2.43 kg

DRUGS (3)
  1. L-THYROXINE [LEVOTHYROXINE] [Concomitant]
     Active Substance: LEVOTHYROXINE
     Indication: HYPOTHYROIDISM
     Dosage: 75 MICROGRAM, QD
     Route: 064
     Dates: start: 20180130, end: 20181024
  2. FOLIO FORTE [Concomitant]
     Active Substance: FOLIC ACID\VITAMINS
     Indication: NUTRITIONAL SUPPLEMENTATION
     Dosage: 0.8 MILLIGRAM, QD
     Route: 064
     Dates: start: 20180130, end: 20181001
  3. QUETIAPINE FUMARATE. [Suspect]
     Active Substance: QUETIAPINE FUMARATE
     Indication: OBSESSIVE THOUGHTS
     Dosage: 200 MILLIGRAM, QD
     Route: 064
     Dates: start: 20180130, end: 20181024

REACTIONS (4)
  - Hypoglycaemia neonatal [Recovered/Resolved]
  - Small for dates baby [Unknown]
  - Benign enlargement of the subarachnoid spaces [Unknown]
  - Foetal exposure during pregnancy [Unknown]

NARRATIVE: CASE EVENT DATE: 20181024
